FAERS Safety Report 18350440 (Version 1)
Quarter: 2020Q4

REPORT INFORMATION
  Report Type: Spontaneous
  Country: FR (occurrence: FR)
  Receive Date: 20201006
  Receipt Date: 20201006
  Transmission Date: 20210114
  Serious: Yes (Other)
  Sender: FDA-Public Use
  Company Number: FR-MYLANLABS-2020M1083774

PATIENT
  Age: 55 Year
  Sex: Female
  Weight: 91 kg

DRUGS (2)
  1. BUDESONIDE. [Suspect]
     Active Substance: BUDESONIDE
     Indication: AUTOIMMUNE HEPATITIS
     Dosage: 9 MILLIGRAM
     Route: 048
     Dates: start: 20190706, end: 20190711
  2. CORTANCYL [Suspect]
     Active Substance: PREDNISONE
     Indication: ALLOIMMUNE HEPATITIS
     Dosage: 80 MILLIGRAM
     Route: 048
     Dates: start: 20190711, end: 202005

REACTIONS (2)
  - Adrenal insufficiency [Unknown]
  - Diabetes mellitus [Recovered/Resolved]

NARRATIVE: CASE EVENT DATE: 20190708
